FAERS Safety Report 4953083-4 (Version None)
Quarter: 2006Q1

REPORT INFORMATION
  Report Type: 
  Country: None (occurrence: None)
  Receive Date: 20060320
  Receipt Date: 20060306
  Transmission Date: 20060701
  Serious: Yes (Life-Threatening)
  Sender: FDA-Public Use
  Company Number: 200330250BWH

PATIENT
  Age: 72 Year
  Sex: Male
  Weight: 85.7298 kg

DRUGS (3)
  1. LEVITRA [Suspect]
     Indication: ERECTILE DYSFUNCTION
     Dosage: 10 MG, ONCE, ORAL
     Route: 048
     Dates: start: 20030923
  2. SYNTHROID [Concomitant]
  3. GLYBURIDE [Concomitant]

REACTIONS (1)
  - BLINDNESS TRANSIENT [None]
